FAERS Safety Report 15005752 (Version 1)
Quarter: 2018Q2

REPORT INFORMATION
  Report Type: Spontaneous
  Country: US (occurrence: US)
  Receive Date: 20180613
  Receipt Date: 20180613
  Transmission Date: 20180711
  Serious: No
  Sender: FDA-Public Use
  Company Number: US-TELIGENT, INC-IGIL20180323

PATIENT
  Sex: Female

DRUGS (5)
  1. NYSTATIN AND TRIAMCINOLONE ACETONIDE [Suspect]
     Active Substance: NYSTATIN\TRIAMCINOLONE ACETONIDE
     Indication: RASH ERYTHEMATOUS
     Dosage: UNKNOWN
     Route: 061
     Dates: start: 2014
  2. UNSPECIFIED MEDICATION FOR HEARTBURN [Concomitant]
     Indication: DYSPEPSIA
     Dosage: UNKNOWN
     Route: 065
  3. UNSPECIFIED MEDICATION FOR BLOOD PRESSURE [Concomitant]
     Indication: HYPERTENSION
     Dosage: UNKNOWN
     Route: 065
  4. UNSPECIFIED MEDICATION FOR DIABETES [Concomitant]
     Indication: DIABETES MELLITUS
     Dosage: UNKNOWN
     Route: 065
  5. UNSPECIFIED MEDICATION FOR THYROID [Concomitant]
     Indication: HYPOTHYROIDISM
     Dosage: UNKNOWN
     Route: 065

REACTIONS (2)
  - Accidental exposure to product [None]
  - Drug effect decreased [Not Recovered/Not Resolved]
